FAERS Safety Report 7948406-8 (Version None)
Quarter: 2011Q4

REPORT INFORMATION
  Report Type: 
  Country: None (occurrence: None)
  Receive Date: 20111130
  Receipt Date: 20111121
  Transmission Date: 20120403
  Serious: Yes (Other)
  Sender: FDA-Public Use
  Company Number: US-CELGENEUS-163-20785-11063297

PATIENT
  Sex: Male

DRUGS (1)
  1. THALOMID [Suspect]
     Indication: MULTIPLE MYELOMA
     Dosage: 100 MILLIGRAM
     Route: 048
     Dates: start: 20101001

REACTIONS (4)
  - ADVERSE DRUG REACTION [None]
  - DRUG INTOLERANCE [None]
  - UPPER LIMB FRACTURE [None]
  - IMPAIRED HEALING [None]
